FAERS Safety Report 18053475 (Version 1)
Quarter: 2020Q3

REPORT INFORMATION
  Report Type: Spontaneous
  Country: US (occurrence: US)
  Receive Date: 20200721
  Receipt Date: 20200721
  Transmission Date: 20201103
  Serious: Yes (Hospitalization)
  Sender: FDA-Public Use
  Company Number: None

PATIENT
  Age: 59 Year
  Sex: Female
  Weight: 89.4 kg

DRUGS (15)
  1. ACETAMINOPHEN. [Concomitant]
     Active Substance: ACETAMINOPHEN
     Dates: start: 20200221
  2. LOVASTATIN. [Concomitant]
     Active Substance: LOVASTATIN
     Dates: start: 20200221
  3. CERTIRIZINE [Concomitant]
     Dates: start: 20200227
  4. CITALOPRAM [Concomitant]
     Active Substance: CITALOPRAM HYDROBROMIDE
     Dates: start: 20200221
  5. LOMOTIL [Concomitant]
     Active Substance: ATROPINE SULFATE\DIPHENOXYLATE HYDROCHLORIDE
     Dates: start: 20200721
  6. LORAZEPAM. [Concomitant]
     Active Substance: LORAZEPAM
     Dates: start: 20200221
  7. CHOLECALCIFEROL [Concomitant]
     Active Substance: CHOLECALCIFEROL
     Dates: start: 20200221
  8. PROCHLORPERAZINE. [Concomitant]
     Active Substance: PROCHLORPERAZINE
     Dates: start: 20200721
  9. LINACLOTIDE [Concomitant]
     Active Substance: LINACLOTIDE
     Dates: start: 20200221
  10. TRIMCINOLONE [Concomitant]
     Dates: start: 20200227
  11. ONDANSETRON [Concomitant]
     Active Substance: ONDANSETRON
     Dates: start: 20200721
  12. OMEPRAZOLE. [Concomitant]
     Active Substance: OMEPRAZOLE
     Dates: start: 20200221
  13. ABEMACICLIB [Suspect]
     Active Substance: ABEMACICLIB
     Indication: OVARIAN CANCER METASTATIC
     Route: 048
     Dates: start: 20200707, end: 20200720
  14. CARVEDILOL. [Concomitant]
     Active Substance: CARVEDILOL
     Dates: start: 20200221
  15. LOSARTAN. [Concomitant]
     Active Substance: LOSARTAN
     Dates: start: 20200221

REACTIONS (4)
  - Acute kidney injury [None]
  - Anaemia [None]
  - Diarrhoea [None]
  - Acidosis [None]

NARRATIVE: CASE EVENT DATE: 20200721
